FAERS Safety Report 5091911-5 (Version None)
Quarter: 2006Q3

REPORT INFORMATION
  Report Type: 
  Country: None (occurrence: None)
  Receive Date: 20060825
  Receipt Date: 20060815
  Transmission Date: 20061208
  Serious: Yes (Hospitalization)
  Sender: FDA-Public Use
  Company Number: L06-GER-03373-01

PATIENT
  Age: 79 Year
  Sex: Male

DRUGS (10)
  1. MEMANTINE HCL [Suspect]
     Indication: DEMENTIA
     Dosage: 10 MG QD PO
     Route: 048
  2. GALANTAMINE HYDROBROMIDE [Suspect]
     Indication: DEMENTIA
     Dosage: 8 MG QD
  3. GALANTAMINE HYDROBROMIDE [Suspect]
     Indication: DEMENTIA
  4. PROTHIPENDYL [Suspect]
     Indication: AGITATION
  5. PROTHIPENDYL [Suspect]
     Indication: SLEEP DISORDER
  6. GLUCOBAY [Concomitant]
  7. PRAVASTATIN SODIUM [Concomitant]
  8. METOPROLOL TARTRATE [Concomitant]
  9. CAPTOGAMMA (CAPTOPRIL) [Concomitant]
  10. ACETYLSALICYLIC ACID SRT [Concomitant]

REACTIONS (4)
  - AGITATION [None]
  - FALL [None]
  - PLEUROTHOTONUS [None]
  - SLEEP DISORDER [None]
